FAERS Safety Report 4496172-3 (Version None)
Quarter: 2004Q4

REPORT INFORMATION
  Report Type: 
  Country: None (occurrence: None)
  Receive Date: 20041102
  Receipt Date: 20041019
  Transmission Date: 20050328
  Serious: Yes (Hospitalization)
  Sender: FDA-Public Use
  Company Number: 200410350BBE

PATIENT
  Age: 27 Year
  Sex: Female

DRUGS (3)
  1. GAMMAGLOBULIN (MANUFACTURER UNKNOWN) [Suspect]
     Indication: GUILLAIN-BARRE SYNDROME
     Dosage: INTRAVENOUS
     Route: 042
  2. GAMMAGLOBULIN (MANUFACTURER UNKNOWN) [Suspect]
     Indication: MILLER FISHER SYNDROME
     Dosage: INTRAVENOUS
     Route: 042
  3. ZYPREXA [Concomitant]

REACTIONS (6)
  - DEHYDRATION [None]
  - ELECTROCARDIOGRAM QT PROLONGED [None]
  - HYPOKALAEMIA [None]
  - INSOMNIA [None]
  - SHOCK [None]
  - VENTRICULAR TACHYCARDIA [None]
